FAERS Safety Report 19607835 (Version 1)
Quarter: 2021Q3

REPORT INFORMATION
  Report Type: Spontaneous
  Country: US (occurrence: US)
  Receive Date: 20210722
  Receipt Date: 20210722
  Transmission Date: 20211014
  Serious: No
  Sender: FDA-Public Use
  Company Number: None

PATIENT
  Age: 45 Year
  Sex: Male

DRUGS (1)
  1. VOSEVI [Suspect]
     Active Substance: SOFOSBUVIR\VELPATASVIR\VOXILAPREVIR
     Indication: HEPATITIS C
     Dosage: ?          OTHER DOSE:400?100?100MG;?
     Route: 048
     Dates: start: 202106

REACTIONS (5)
  - Fatigue [None]
  - Sleep disorder [None]
  - Movement disorder [None]
  - Dysstasia [None]
  - Back disorder [None]

NARRATIVE: CASE EVENT DATE: 20210722
